FAERS Safety Report 14292848 (Version 2)
Quarter: 2017Q4

REPORT INFORMATION
  Report Type: Report from Study
  Country: US (occurrence: US)
  Receive Date: 20171215
  Receipt Date: 20171229
  Transmission Date: 20180321
  Serious: Yes (Hospitalization)
  Sender: FDA-Public Use
  Company Number: US-PFIZER INC-2017531271

PATIENT
  Age: 71 Year
  Sex: Male
  Weight: 52.7 kg

DRUGS (4)
  1. PALBOCICLIB [Suspect]
     Active Substance: PALBOCICLIB
     Indication: SQUAMOUS CELL CARCINOMA OF THE TONGUE
     Dosage: 125 MG, CYCLIC (ONCE DAILY (QD) ON DAYS 1-21 OF EACH 28 DAY CYCLE)
     Route: 048
     Dates: start: 20160413, end: 20171208
  2. PANTOPRAZOLE [Concomitant]
     Active Substance: PANTOPRAZOLE
     Dosage: UNK
  3. SYNTHROID [Concomitant]
     Active Substance: LEVOTHYROXINE SODIUM
     Dosage: UNK
  4. CETUXIMAB. [Suspect]
     Active Substance: CETUXIMAB
     Indication: SQUAMOUS CELL CARCINOMA OF THE TONGUE
     Dosage: 250 MG/M2, WEEKLY
     Route: 042
     Dates: start: 20160413, end: 20171205

REACTIONS (1)
  - Duodenal obstruction [Recovered/Resolved]

NARRATIVE: CASE EVENT DATE: 20171208
